FAERS Safety Report 17391325 (Version 1)
Quarter: 2020Q1

REPORT INFORMATION
  Report Type: Report from Study
  Country: US (occurrence: US)
  Receive Date: 20200207
  Receipt Date: 20200207
  Transmission Date: 20200409
  Serious: Yes (Other)
  Sender: FDA-Public Use
  Company Number: US-CLOVIS ONCOLOGY-CLO-2020-000215

PATIENT
  Sex: Female

DRUGS (2)
  1. RUBRACA [Suspect]
     Active Substance: RUCAPARIB CAMSYLATE
     Dosage: 500 MG, BID
     Route: 048
     Dates: start: 201901
  2. RUBRACA [Suspect]
     Active Substance: RUCAPARIB CAMSYLATE
     Indication: OVARIAN CANCER
     Dosage: 600 MG, BID
     Route: 048
     Dates: start: 201811, end: 201901

REACTIONS (6)
  - Nausea [Recovering/Resolving]
  - Fatigue [Recovering/Resolving]
  - Lymphoma [Unknown]
  - Full blood count decreased [Recovering/Resolving]
  - Sunburn [Unknown]
  - Depression [Unknown]

NARRATIVE: CASE EVENT DATE: 2019
